FAERS Safety Report 6059336-3 (Version None)
Quarter: 2009Q1

REPORT INFORMATION
  Report Type: 
  Country: None (occurrence: None)
  Receive Date: 20090128
  Receipt Date: 20090116
  Transmission Date: 20090719
  Serious: Yes (Other)
  Sender: FDA-Public Use
  Company Number: DEP_00224_2009

PATIENT
  Age: 69 Year
  Sex: Male
  Weight: 113.3993 kg

DRUGS (3)
  1. GLUMETZA [Suspect]
     Indication: DIABETES MELLITUS
     Dosage: 500 MG QD, ORAL
     Route: 048
     Dates: start: 20090102, end: 20090103
  2. CRESTOR [Concomitant]
  3. HYZAAR [Concomitant]

REACTIONS (2)
  - ATRIAL FIBRILLATION [None]
  - CONDITION AGGRAVATED [None]
